FAERS Safety Report 18844856 (Version 1)
Quarter: 2021Q1

REPORT INFORMATION
  Report Type: Spontaneous
  Country: JP (occurrence: JP)
  Receive Date: 20210203
  Receipt Date: 20210203
  Transmission Date: 20210419
  Serious: Yes (Other)
  Sender: FDA-Public Use
  Company Number: JP-EXELIXIS-CABO-20032559

PATIENT
  Age: 51 Year
  Sex: Male

DRUGS (5)
  1. CABOMETYX [Suspect]
     Active Substance: CABOZANTINIB S-MALATE
     Dosage: 40 MG
     Route: 048
     Dates: start: 20200903
  2. CABOMETYX [Suspect]
     Active Substance: CABOZANTINIB S-MALATE
     Dosage: UNK
     Route: 048
  3. HIRUDOID [Concomitant]
     Active Substance: GLYCOSAMINOGLYCANS
     Dosage: UNK
  4. LAC?B [Concomitant]
     Active Substance: BIFIDOBACTERIUM SPP.
     Dosage: UNK
  5. CABOMETYX [Suspect]
     Active Substance: CABOZANTINIB S-MALATE
     Indication: RENAL CANCER
     Dosage: 60 MG
     Route: 048
     Dates: start: 20200804, end: 20200820

REACTIONS (9)
  - Miliaria [Unknown]
  - Diarrhoea [Recovering/Resolving]
  - Serum ferritin decreased [Recovered/Resolved]
  - Melaena [Unknown]
  - Blood lactate dehydrogenase increased [Recovered/Resolved]
  - Alopecia [Unknown]
  - Transaminases increased [Recovered/Resolved]
  - Palmar-plantar erythrodysaesthesia syndrome [Unknown]
  - Dysgeusia [Unknown]

NARRATIVE: CASE EVENT DATE: 20200805
